FAERS Safety Report 9256454 (Version 1)
Quarter: 2013Q2

REPORT INFORMATION
  Report Type: Spontaneous
  Country: JP (occurrence: JP)
  Receive Date: 20130426
  Receipt Date: 20130426
  Transmission Date: 20140414
  Serious: Yes (Hospitalization, Other)
  Sender: FDA-Public Use
  Company Number: JP-ROCHE-1215899

PATIENT
  Age: 56 Year
  Sex: Male

DRUGS (18)
  1. AVASTIN [Suspect]
     Indication: COLON CANCER METASTATIC
     Route: 041
     Dates: start: 20120411, end: 20130107
  2. AVASTIN [Suspect]
     Indication: COLON CANCER METASTATIC
     Route: 041
     Dates: start: 20130124, end: 20130221
  3. PREDONINE [Suspect]
     Indication: INTERSTITIAL LUNG DISEASE
     Route: 065
     Dates: start: 20130307, end: 20130320
  4. PREDONINE [Suspect]
     Route: 065
     Dates: start: 20130321
  5. LEVOFOLINATE [Concomitant]
     Indication: COLON CANCER METASTATIC
     Dosage: DOSAGE IS UNCERTAIN.
     Route: 041
     Dates: start: 20120411, end: 20130107
  6. ELPLAT [Concomitant]
     Indication: COLON CANCER METASTATIC
     Dosage: DOSAGE IS UNCERTAIN.
     Route: 041
     Dates: start: 20120411, end: 201209
  7. ELPLAT [Concomitant]
     Indication: COLON CANCER METASTATIC
     Dosage: DOSAGE IS UNCERTAIN.
     Route: 041
     Dates: start: 201211, end: 20130107
  8. FLUOROURACIL [Concomitant]
     Indication: COLON CANCER METASTATIC
     Dosage: DOSAGE IS UNCERTAIN.
     Route: 040
     Dates: start: 20120411, end: 20130107
  9. FLUOROURACIL [Concomitant]
     Indication: COLON CANCER METASTATIC
     Dosage: DOSAGE IS UNCERTAIN.
     Route: 041
     Dates: start: 20120411, end: 201301
  10. IRINOTECAN HYDROCHLORIDE [Concomitant]
     Indication: COLON CANCER METASTATIC
     Dosage: DOSAGE IS UNCERTAIN.
     Route: 041
     Dates: start: 20130124, end: 20130221
  11. MAGNESIUM OXIDE [Concomitant]
     Route: 048
  12. AMLODIN [Concomitant]
     Route: 048
  13. NAPROXEN [Concomitant]
     Route: 048
  14. GLIMEPIRIDE [Concomitant]
     Route: 048
  15. BIOFERMIN [Concomitant]
     Route: 048
  16. HACHIAZULE [Concomitant]
     Route: 049
  17. JANUVIA [Concomitant]
     Route: 048
  18. PROTECADIN [Concomitant]
     Route: 048

REACTIONS (6)
  - Tumour perforation [Recovering/Resolving]
  - Interstitial lung disease [Recovered/Resolved]
  - Peritonitis [Recovering/Resolving]
  - Disseminated intravascular coagulation [Unknown]
  - Hepatic failure [Unknown]
  - Neuropathy peripheral [Unknown]
